FAERS Safety Report 6604067-1 (Version None)
Quarter: 2010Q1

REPORT INFORMATION
  Report Type: 
  Country: None (occurrence: None)
  Receive Date: 20100226
  Receipt Date: 20090504
  Transmission Date: 20100710
  Serious: No
  Sender: FDA-Public Use
  Company Number: A0782346A

PATIENT
  Age: 57 Year
  Sex: Female

DRUGS (8)
  1. LAMOTRIGINE [Suspect]
     Dosage: 200MG PER DAY
     Route: 048
     Dates: start: 20080501
  2. SYNTHROID [Concomitant]
  3. BENICAR [Concomitant]
  4. VERAPAMIL [Concomitant]
  5. CYMBALTA [Concomitant]
  6. LIPITOR [Concomitant]
  7. LORAZEPAM [Concomitant]
  8. AMBIEN [Concomitant]

REACTIONS (1)
  - INSOMNIA [None]
